FAERS Safety Report 9004347 (Version 1)
Quarter: 2013Q1

REPORT INFORMATION
  Report Type: Spontaneous
  Country: TR (occurrence: TR)
  Receive Date: 20130108
  Receipt Date: 20130108
  Transmission Date: 20140127
  Serious: Yes (Other)
  Sender: FDA-Public Use
  Company Number: TR-ASTELLAS-2013EU000039

PATIENT
  Sex: Male
  Weight: 1.18 kg

DRUGS (2)
  1. TACROLIMUS SYSTEMIC [Suspect]
     Indication: FOETAL EXPOSURE DURING PREGNANCY
     Dosage: UNK
     Route: 064
  2. AZATHIOPRINE [Concomitant]
     Indication: FOETAL EXPOSURE DURING PREGNANCY
     Dosage: UNK
     Route: 064

REACTIONS (6)
  - Premature baby [Unknown]
  - Foetal distress syndrome [Unknown]
  - Low birth weight baby [Unknown]
  - Hyperkalaemia [Unknown]
  - Apnoea [Unknown]
  - Blood bilirubin increased [Unknown]
